FAERS Safety Report 11127170 (Version 1)
Quarter: 2015Q2

REPORT INFORMATION
  Report Type: Spontaneous
  Country: US (occurrence: None)
  Receive Date: 20150520
  Receipt Date: 20150520
  Transmission Date: 20150821
  Serious: Yes (Life-Threatening, Hospitalization, Disabling)
  Sender: FDA-Public Use
  Company Number: None

PATIENT
  Age: 85 Year
  Sex: Female
  Weight: 81.65 kg

DRUGS (15)
  1. SERTRALINE [Concomitant]
     Active Substance: SERTRALINE HYDROCHLORIDE
  2. SPINONOLACTONE [Concomitant]
  3. IMDORER [Concomitant]
  4. PRAVASTATIN [Concomitant]
     Active Substance: PRAVASTATIN\PRAVASTATIN SODIUM
  5. D3 [Concomitant]
     Active Substance: 25-HYDROXYCHOLECALCIFEROL, 5-TRANS-
  6. TRADJENTA [Suspect]
     Active Substance: LINAGLIPTIN
     Indication: GLUCOSE TOLERANCE IMPAIRED
     Dosage: 5MG, 1PILL, ONCE DAILY, BY MOUTH
     Route: 048
     Dates: start: 2012, end: 20150421
  7. BENICAR [Concomitant]
     Active Substance: OLMESARTAN MEDOXOMIL
  8. MULTIVITAMIN [Concomitant]
     Active Substance: VITAMINS
  9. VITAMIN B COMPLEX [Concomitant]
     Active Substance: CYANOCOBALAMIN\DEXPANTHENOL\NIACINAMIDE\PYRIDOXINE HYDROCHLORIDE\RIBOFLAVIN 5^-PHOSPHATE SODIUM\THIAMINE HYDROCHLORIDE\VITAMIN B COMPLEX
  10. LOW DOSE ASPIRIN [Concomitant]
     Active Substance: ASPIRIN
  11. EYE DROPS [Concomitant]
     Active Substance: TETRAHYDROZOLINE HYDROCHLORIDE
  12. SYNTHROID [Concomitant]
     Active Substance: LEVOTHYROXINE SODIUM
  13. VERAPMILER [Concomitant]
  14. OXYCODONE [Concomitant]
     Active Substance: OXYCODONE
  15. BUMTETANIDE [Concomitant]

REACTIONS (12)
  - Nasal congestion [None]
  - Blood pressure fluctuation [None]
  - Hyperhidrosis [None]
  - Blood glucose fluctuation [None]
  - Chest pain [None]
  - Rash [None]
  - Pain [None]
  - Cardiac failure [None]
  - Vision blurred [None]
  - Loss of consciousness [None]
  - Asthenia [None]
  - Dysphagia [None]

NARRATIVE: CASE EVENT DATE: 20141223
